FAERS Safety Report 24602396 (Version 2)
Quarter: 2024Q4

REPORT INFORMATION
  Report Type: Spontaneous
  Country: IL (occurrence: IL)
  Receive Date: 20241111
  Receipt Date: 20241213
  Transmission Date: 20250115
  Serious: Yes (Other)
  Sender: TEVA
  Company Number: IL-TEVA-VS-3262321

PATIENT
  Age: 71 Year
  Sex: Female

DRUGS (2)
  1. DULOXETINE [Suspect]
     Active Substance: DULOXETINE
     Indication: Pain
     Route: 065
     Dates: start: 20241027, end: 20241027
  2. B12 [Concomitant]
     Indication: Product used for unknown indication

REACTIONS (8)
  - Exophthalmos [Recovering/Resolving]
  - Chills [Not Recovered/Not Resolved]
  - Nausea [Recovering/Resolving]
  - Malaise [Recovering/Resolving]
  - Abdominal pain [Recovered/Resolved]
  - Vomiting [Recovered/Resolved]
  - Asthenia [Not Recovered/Not Resolved]
  - Diarrhoea [Recovered/Resolved]

NARRATIVE: CASE EVENT DATE: 20241027
